FAERS Safety Report 14608336 (Version 1)
Quarter: 2018Q1

REPORT INFORMATION
  Report Type: Spontaneous
  Country: GB (occurrence: GB)
  Receive Date: 20180307
  Receipt Date: 20180307
  Transmission Date: 20180509
  Serious: Yes (Other)
  Sender: FDA-Public Use
  Company Number: GB-TEVA-2018-GB-864664

PATIENT
  Age: 30 Year
  Sex: Male

DRUGS (2)
  1. IMATINIB [Suspect]
     Active Substance: IMATINIB
     Indication: PRODUCT USE IN UNAPPROVED INDICATION
     Route: 065
  2. IMATINIB [Suspect]
     Active Substance: IMATINIB
     Indication: ACUTE LYMPHOCYTIC LEUKAEMIA

REACTIONS (2)
  - Acute lymphocytic leukaemia recurrent [Unknown]
  - Product use in unapproved indication [Unknown]
